FAERS Safety Report 20175732 (Version 1)
Quarter: 2021Q4

REPORT INFORMATION
  Report Type: Spontaneous
  Country: FR (occurrence: FR)
  Receive Date: 20211213
  Receipt Date: 20211213
  Transmission Date: 20220303
  Serious: Yes (Hospitalization)
  Sender: FDA-Public Use
  Company Number: FR-MYLANLABS-2021M1090573

PATIENT
  Age: 78 Year
  Sex: Male

DRUGS (2)
  1. GABAPENTIN [Suspect]
     Active Substance: GABAPENTIN
     Indication: Neuralgia
     Dosage: REACHED A DOSE OF 3600 MG PER DAY
  2. GABAPENTIN [Suspect]
     Active Substance: GABAPENTIN
     Dosage: 300 MG DAY 1, 600 MG DAY 2, 900 MG DAY 3 AND FINALLY 1500 MG PER DAY AFTER ONE WEEK
     Dates: start: 20211123, end: 20211201

REACTIONS (6)
  - Pain in extremity [Unknown]
  - Tachycardia [Unknown]
  - Chest pain [Not Recovered/Not Resolved]
  - Hypertension [Unknown]
  - Back pain [Unknown]
  - Abdominal pain upper [Not Recovered/Not Resolved]

NARRATIVE: CASE EVENT DATE: 20210101
